FAERS Safety Report 8590388-2 (Version None)
Quarter: 2012Q3

REPORT INFORMATION
  Report Type: 
  Country: None (occurrence: None)
  Receive Date: 20120813
  Receipt Date: 20120802
  Transmission Date: 20120928
  Serious: No
  Sender: FDA-Public Use
  Company Number: NL-JNJFOC-20120609249

PATIENT
  Sex: Female
  Weight: 90 kg

DRUGS (4)
  1. SEMAP [Suspect]
     Indication: PRODUCT USED FOR UNKNOWN INDICATION
     Route: 065
     Dates: start: 19900122
  2. RISPERDAL [Suspect]
     Indication: PRODUCT USED FOR UNKNOWN INDICATION
     Route: 048
     Dates: start: 19900122
  3. CISORDINOL [Suspect]
     Indication: PRODUCT USED FOR UNKNOWN INDICATION
     Route: 065
  4. CISORDINOL [Suspect]
     Route: 065
     Dates: start: 19900122

REACTIONS (4)
  - HEADACHE [None]
  - ECZEMA [None]
  - HYPERTRICHOSIS [None]
  - VOMITING [None]
